FAERS Safety Report 16071631 (Version 5)
Quarter: 2019Q4

REPORT INFORMATION
  Report Type: Spontaneous
  Country: US (occurrence: US)
  Receive Date: 20190314
  Receipt Date: 20191003
  Transmission Date: 20200122
  Serious: Yes (Other)
  Sender: FDA-Public Use
  Company Number: US-ASTRAZENECA-2018SF34961

PATIENT
  Age: 16180 Day
  Sex: Female

DRUGS (58)
  1. NEXIUM [Suspect]
     Active Substance: ESOMEPRAZOLE MAGNESIUM
     Indication: DYSPEPSIA
     Route: 048
  2. HYDROCODONE [Concomitant]
     Active Substance: HYDROCODONE
  3. CEFDINIR. [Concomitant]
     Active Substance: CEFDINIR
  4. SODIUM BICARBONATE. [Concomitant]
     Active Substance: SODIUM BICARBONATE
  5. TRIMETHOPRIM. [Concomitant]
     Active Substance: TRIMETHOPRIM
  6. PREDNISONE. [Concomitant]
     Active Substance: PREDNISONE
  7. NEXIUM [Suspect]
     Active Substance: ESOMEPRAZOLE MAGNESIUM
     Indication: DYSPEPSIA
     Route: 048
     Dates: start: 20110321, end: 20160317
  8. NEXIUM 24HR [Suspect]
     Active Substance: ESOMEPRAZOLE MAGNESIUM
     Route: 048
  9. PRILOSEC [Suspect]
     Active Substance: OMEPRAZOLE MAGNESIUM
     Dosage: GENERIC
     Route: 065
     Dates: start: 20170717, end: 20170824
  10. PRILOSEC OTC [Suspect]
     Active Substance: OMEPRAZOLE MAGNESIUM
     Route: 048
  11. CIPROFLOXACIN. [Concomitant]
     Active Substance: CIPROFLOXACIN
  12. WELCHOL [Concomitant]
     Active Substance: COLESEVELAM HYDROCHLORIDE
  13. ALBUTEROL SULFATE. [Concomitant]
     Active Substance: ALBUTEROL SULFATE
  14. NEXIUM [Suspect]
     Active Substance: ESOMEPRAZOLE MAGNESIUM
     Indication: DYSPEPSIA
     Route: 048
     Dates: start: 20110321, end: 20160317
  15. PRILOSEC [Suspect]
     Active Substance: OMEPRAZOLE MAGNESIUM
     Route: 048
  16. NAPROXEN. [Concomitant]
     Active Substance: NAPROXEN
  17. TRAMADOL. [Concomitant]
     Active Substance: TRAMADOL
  18. AMIKACIN. [Concomitant]
     Active Substance: AMIKACIN
  19. CEFTRIAXONE. [Concomitant]
     Active Substance: CEFTRIAXONE
  20. ALBUTEROL. [Concomitant]
     Active Substance: ALBUTEROL
  21. HYDROCHLOROTHIAZIDE. [Concomitant]
     Active Substance: HYDROCHLOROTHIAZIDE
  22. AZITHROMYCIN ANHYDROUS. [Concomitant]
     Active Substance: AZITHROMYCIN ANHYDROUS
  23. BENZONATATE. [Concomitant]
     Active Substance: BENZONATATE
  24. NEXIUM [Suspect]
     Active Substance: ESOMEPRAZOLE MAGNESIUM
     Indication: DYSPEPSIA
     Route: 048
  25. ASPIRIN. [Concomitant]
     Active Substance: ASPIRIN
  26. METHOTREXATE. [Concomitant]
     Active Substance: METHOTREXATE
  27. AMPICILLIN [Concomitant]
     Active Substance: AMPICILLIN
  28. ZOFRAN [Concomitant]
     Active Substance: ONDANSETRON HYDROCHLORIDE
  29. PLAQUENIL [Concomitant]
     Active Substance: HYDROXYCHLOROQUINE SULFATE
  30. PROMETHAZINE [Concomitant]
     Active Substance: PROMETHAZINE HYDROCHLORIDE
  31. SULFAMETHOXAZOLE [Concomitant]
     Active Substance: SULFAMETHOXAZOLE
  32. PREVACID 24 HR [Suspect]
     Active Substance: LANSOPRAZOLE
     Route: 065
  33. CYCLOBENZAPRINE. [Concomitant]
     Active Substance: CYCLOBENZAPRINE
  34. CODEINE [Concomitant]
     Active Substance: CODEINE
  35. CEFOXITIN [Concomitant]
     Active Substance: CEFOXITIN SODIUM
  36. ZYRTEC [Concomitant]
     Active Substance: CETIRIZINE HYDROCHLORIDE
  37. BUSPIRONE [Concomitant]
     Active Substance: BUSPIRONE HYDROCHLORIDE
  38. NEXIUM [Suspect]
     Active Substance: ESOMEPRAZOLE MAGNESIUM
     Indication: DYSPEPSIA
     Dosage: GENERIC
     Route: 065
     Dates: start: 20170228, end: 20181030
  39. AMLODIPINE [Concomitant]
     Active Substance: AMLODIPINE BESYLATE
  40. TIGECYCLINE. [Concomitant]
     Active Substance: TIGECYCLINE
  41. FOLIC ACID. [Concomitant]
     Active Substance: FOLIC ACID
  42. SINGULAIR [Concomitant]
     Active Substance: MONTELUKAST SODIUM
  43. CELEXA [Concomitant]
     Active Substance: CITALOPRAM HYDROBROMIDE
  44. LORATADINE. [Concomitant]
     Active Substance: LORATADINE
  45. VITAMIN D [Concomitant]
     Active Substance: VITAMIN D NOS
  46. FLUCONAZOLE. [Concomitant]
     Active Substance: FLUCONAZOLE
  47. NEXIUM [Suspect]
     Active Substance: ESOMEPRAZOLE MAGNESIUM
     Indication: DYSPEPSIA
     Route: 048
     Dates: start: 20110321, end: 20181030
  48. CELLCEPT [Concomitant]
     Active Substance: MYCOPHENOLATE MOFETIL\MYCOPHENOLATE MOFETIL HYDROCHLORIDE
  49. TAMIFLU [Concomitant]
     Active Substance: OSELTAMIVIR PHOSPHATE
  50. PRILOSEC [Suspect]
     Active Substance: OMEPRAZOLE MAGNESIUM
     Dosage: 40 MG DAILY
     Route: 048
     Dates: start: 20110321, end: 20170824
  51. PREVACID [Suspect]
     Active Substance: LANSOPRAZOLE
     Route: 065
  52. FLUTICASONE. [Concomitant]
     Active Substance: FLUTICASONE
  53. GENTAMICIN. [Concomitant]
     Active Substance: GENTAMICIN
  54. METOPROLOL TARTRATE. [Concomitant]
     Active Substance: METOPROLOL TARTRATE
  55. FERROUS SULFATE. [Concomitant]
     Active Substance: FERROUS SULFATE
  56. ONDANSETRON [Concomitant]
     Active Substance: ONDANSETRON
  57. LEFLUNOMIDE. [Concomitant]
     Active Substance: LEFLUNOMIDE
  58. HYDROXYCHLOROQUINE [Concomitant]
     Active Substance: HYDROXYCHLOROQUINE

REACTIONS (4)
  - Chronic kidney disease [Not Recovered/Not Resolved]
  - Renal failure [Unknown]
  - Acute kidney injury [Not Recovered/Not Resolved]
  - Renal injury [Unknown]

NARRATIVE: CASE EVENT DATE: 20150309
